FAERS Safety Report 13737691 (Version 1)
Quarter: 2017Q3

REPORT INFORMATION
  Report Type: Spontaneous
  Country: US (occurrence: US)
  Receive Date: 20170710
  Receipt Date: 20170710
  Transmission Date: 20171127
  Serious: Yes (Other)
  Sender: FDA-Public Use
  Company Number: US-SAOL THERAPEUTICS-2016SAO00306

PATIENT
  Sex: Male
  Weight: 104.31 kg

DRUGS (1)
  1. COMPOUNDED BACLOFEN [Suspect]
     Active Substance: BACLOFEN
     Dosage: 840 ?G, \DAY

REACTIONS (2)
  - Therapeutic response decreased [Recovered/Resolved]
  - Device kink [Recovered/Resolved]
